FAERS Safety Report 5302024-9 (Version None)
Quarter: 2007Q2

REPORT INFORMATION
  Report Type: 
  Country: None (occurrence: None)
  Receive Date: 20070416
  Receipt Date: 20070416
  Transmission Date: 20071010
  Serious: Yes (Other)
  Sender: FDA-Public Use
  Company Number: None

PATIENT
  Sex: Female
  Weight: 95.2554 kg

DRUGS (2)
  1. LEVAQUIN [Suspect]
     Indication: INFLUENZA
     Dosage: 1 DAILY FOR 7 DAYS    PO
     Route: 048
     Dates: start: 20061217, end: 20061224
  2. LEVAQUIN [Suspect]
     Indication: PNEUMONIA
     Dosage: 1 DAILY FOR 7 DAYS    PO
     Route: 048
     Dates: start: 20061217, end: 20061224

REACTIONS (3)
  - ANXIETY [None]
  - RASH ERYTHEMATOUS [None]
  - RASH PRURITIC [None]
